FAERS Safety Report 10519753 (Version 1)
Quarter: 2014Q4

REPORT INFORMATION
  Report Type: Report from Study
  Country: CA (occurrence: CA)
  Receive Date: 20141015
  Receipt Date: 20141015
  Transmission Date: 20150528
  Serious: Yes (Hospitalization)
  Sender: FDA-Public Use
  Company Number: CA-BRISTOL-MYERS SQUIBB COMPANY-21471461

PATIENT
  Sex: Female

DRUGS (3)
  1. EXTERNAL-PREDNISONE [Concomitant]
  2. CELEBREX [Concomitant]
     Active Substance: CELECOXIB
  3. ABATACEPT [Suspect]
     Active Substance: ABATACEPT
     Indication: RHEUMATOID ARTHRITIS
     Dosage: 500 MG, Q4WK
     Route: 042
     Dates: start: 20140407

REACTIONS (1)
  - Toe amputation [Unknown]
